FAERS Safety Report 22149965 (Version 3)
Quarter: 2023Q2

REPORT INFORMATION
  Report Type: Spontaneous
  Country: BE (occurrence: BE)
  Receive Date: 20230329
  Receipt Date: 20230511
  Transmission Date: 20230722
  Serious: Yes (Hospitalization, Other)
  Sender: FDA-Public Use
  Company Number: BE-KRKA-BE2023K03013LIT

PATIENT
  Age: 60 Year
  Sex: Female

DRUGS (7)
  1. OLMESARTAN [Suspect]
     Active Substance: OLMESARTAN
     Indication: Product used for unknown indication
     Dosage: 20 MILLIGRAM(20 MG)
     Route: 065
  2. OLMESARTAN [Suspect]
     Active Substance: OLMESARTAN
     Dosage: 40 MILLIGRAM(40 MG)
     Route: 065
     Dates: start: 201703
  3. OLMESARTAN [Suspect]
     Active Substance: OLMESARTAN
     Dosage: 40 MILLIGRAM(40 MG)
     Route: 065
     Dates: start: 201704
  4. SOTALOL [Suspect]
     Active Substance: SOTALOL
     Indication: Atrial flutter
     Dosage: UNK
     Route: 065
  5. ATORVASTATIN [Concomitant]
     Active Substance: ATORVASTATIN
     Indication: Product used for unknown indication
     Dosage: 10 MILLIGRAM(10 MG)
     Route: 065
  6. BISOPROLOL [Concomitant]
     Active Substance: BISOPROLOL
     Indication: Product used for unknown indication
     Dosage: 2.5 MILLIGRAM(2.5 MG)
     Route: 065
  7. SPIRONOLACTONE [Concomitant]
     Active Substance: SPIRONOLACTONE
     Indication: Product used for unknown indication
     Dosage: 25 MILLIGRAM(25 MG)
     Route: 065

REACTIONS (16)
  - Acute kidney injury [Unknown]
  - Decreased appetite [Recovered/Resolved]
  - Gastrointestinal disorder [Recovering/Resolving]
  - Hepatic enzyme increased [Recovered/Resolved]
  - Hypokalaemia [Unknown]
  - Hepatic steatosis [Recovered/Resolved]
  - Renal impairment [Recovered/Resolved]
  - Stupor [Unknown]
  - Torsade de pointes [Unknown]
  - Abdominal pain upper [Recovered/Resolved]
  - Diarrhoea [Recovered/Resolved]
  - Weight decreased [Recovered/Resolved]
  - Microvillous inclusion disease [Recovered/Resolved]
  - Chronic gastritis [Recovered/Resolved]
  - Nausea [Recovered/Resolved]
  - Vomiting [Recovered/Resolved]

NARRATIVE: CASE EVENT DATE: 20170101
